FAERS Safety Report 18080077 (Version 1)
Quarter: 2020Q3

REPORT INFORMATION
  Report Type: Spontaneous
  Country: US (occurrence: US)
  Receive Date: 20200728
  Receipt Date: 20200728
  Transmission Date: 20201103
  Serious: Yes (Hospitalization)
  Sender: FDA-Public Use
  Company Number: None

PATIENT
  Age: 78 Year
  Sex: Male
  Weight: 107 kg

DRUGS (4)
  1. CLOPIDOGREL (CLOPIDOGREL BISULFATE 75MG TAB) [Suspect]
     Active Substance: CLOPIDOGREL BISULFATE
     Indication: ACUTE CORONARY SYNDROME
     Route: 048
     Dates: start: 20200121
  2. ASPIRIN (ASPIRIN 81MG TAB EC) [Suspect]
     Active Substance: ASPIRIN
     Indication: CARDIAC OPERATION
     Route: 048
     Dates: start: 20200120, end: 20200603
  3. CLOPIDOGREL (CLOPIDOGREL BISULFATE 75MG TAB) [Suspect]
     Active Substance: CLOPIDOGREL BISULFATE
     Indication: CARDIAC OPERATION
     Route: 048
     Dates: start: 20200121
  4. ASPIRIN (ASPIRIN 81MG TAB EC) [Suspect]
     Active Substance: ASPIRIN
     Indication: ACUTE MYOCARDIAL INFARCTION
     Route: 048
     Dates: start: 20200120, end: 20200603

REACTIONS (3)
  - Gastric ulcer haemorrhage [None]
  - Anaemia [None]
  - Packed red blood cell transfusion [None]

NARRATIVE: CASE EVENT DATE: 20200603
